FAERS Safety Report 5672640-3 (Version None)
Quarter: 2008Q1

REPORT INFORMATION
  Report Type: 
  Country: None (occurrence: None)
  Receive Date: 20080319
  Receipt Date: 20080311
  Transmission Date: 20080703
  Serious: Yes (Other)
  Sender: FDA-Public Use
  Company Number: PHBS2008FR03391

PATIENT
  Age: 77 Year
  Sex: Male

DRUGS (5)
  1. TERBINAFINE HCL [Suspect]
     Indication: TRICHOPHYTOSIS
     Dosage: 250 MG/DAY
  2. VINCRISTINE [Concomitant]
     Indication: MYCOSIS FUNGOIDES
  3. CYCLOPHOSPHAMIDE [Concomitant]
  4. PREDNISONE [Concomitant]
     Indication: MYCOSIS FUNGOIDES
  5. KETOCONAZOLE [Concomitant]

REACTIONS (4)
  - CONDITION AGGRAVATED [None]
  - LYMPHOMA [None]
  - MYCOSIS FUNGOIDES STAGE IV [None]
  - SEZARY CELLS INCREASED [None]
